FAERS Safety Report 9257995 (Version 1)
Quarter: 2013Q2

REPORT INFORMATION
  Report Type: Report from Study
  Country: DE (occurrence: DE)
  Receive Date: 20130426
  Receipt Date: 20130426
  Transmission Date: 20140414
  Serious: Yes (Hospitalization)
  Sender: FDA-Public Use
  Company Number: DE-JNJFOC-20130411092

PATIENT
  Age: 66 Year
  Sex: Female
  Weight: 73 kg

DRUGS (13)
  1. REMICADE [Suspect]
     Indication: ANKYLOSING SPONDYLITIS
     Route: 042
  2. ASS [Concomitant]
     Route: 048
     Dates: start: 20130311
  3. ATORVASTATIN [Concomitant]
     Route: 048
     Dates: start: 20130311
  4. AMLODIPINE [Concomitant]
     Route: 048
     Dates: start: 20111215, end: 20130310
  5. AMLODIPINE [Concomitant]
     Route: 048
     Dates: start: 20130311
  6. NAPROXEN [Concomitant]
     Indication: ANKYLOSING SPONDYLITIS
     Route: 048
     Dates: start: 20130417
  7. OMEPRAZOLE [Concomitant]
     Indication: GASTROINTESTINAL DISORDER THERAPY
     Route: 048
  8. DOXYCYCLINE [Concomitant]
     Route: 048
     Dates: start: 20121212, end: 20121217
  9. DOXYCYCLINE [Concomitant]
     Route: 048
     Dates: start: 20130212, end: 20130217
  10. DOXYCYCLINE [Concomitant]
     Route: 048
     Dates: start: 20120305, end: 20120310
  11. DOXYCYCLINE [Concomitant]
     Route: 048
     Dates: start: 20120202, end: 20120211
  12. ROXITHROMYCIN [Concomitant]
     Route: 048
     Dates: start: 20130402, end: 20130406
  13. VOLTAREN RETARD [Concomitant]
     Indication: ANKYLOSING SPONDYLITIS
     Route: 048
     Dates: end: 20130416

REACTIONS (1)
  - Transient ischaemic attack [Recovered/Resolved]
